FAERS Safety Report 4822148-X (Version None)
Quarter: 2005Q4

REPORT INFORMATION
  Report Type: 
  Country: None (occurrence: None)
  Receive Date: 20051107
  Receipt Date: 20051028
  Transmission Date: 20060501
  Serious: Yes (Death, Hospitalization)
  Sender: FDA-Public Use
  Company Number: US-ABBOTT-05P-163-0315769-00

PATIENT
  Age: 41 Year
  Sex: Male

DRUGS (8)
  1. HYDROCODONE/ACETAMINOPHEN [Suspect]
     Indication: BACK PAIN
  2. HYDROMORPHONE [Suspect]
     Indication: DRUG USE FOR UNKNOWN INDICATION
     Route: 058
     Dates: start: 20050202, end: 20050202
  3. HYDROMORPHONE [Suspect]
     Route: 058
     Dates: start: 20050202, end: 20050202
  4. HYDROMORPHONE [Suspect]
     Route: 058
     Dates: start: 20050202, end: 20050202
  5. OXYCODONE HCL [Suspect]
     Indication: PAIN MANAGEMENT
  6. OXYCODONE HCL [Suspect]
     Route: 048
     Dates: start: 20050101, end: 20050202
  7. OXYMORPHONE [Suspect]
     Indication: DRUG USE FOR UNKNOWN INDICATION
  8. FENTANYL [Concomitant]
     Indication: PAIN MANAGEMENT
     Route: 062

REACTIONS (5)
  - CHRONIC OBSTRUCTIVE PULMONARY DISEASE [None]
  - COR PULMONALE [None]
  - DRUG TOXICITY [None]
  - FALL [None]
  - OVERDOSE [None]
